FAERS Safety Report 18627520 (Version 2)
Quarter: 2022Q1

REPORT INFORMATION
  Report Type: Report from Study
  Country: US (occurrence: US)
  Receive Date: 20201217
  Receipt Date: 20220224
  Transmission Date: 20220424
  Serious: Yes (Death, Hospitalization, Other)
  Sender: FDA-Public Use
  Company Number: US-TAKEDA-2020TUS055274

PATIENT
  Sex: Male
  Weight: 77.098 kg

DRUGS (5)
  1. .ALPHA.1-PROTEINASE INHIBITOR HUMAN [Suspect]
     Active Substance: .ALPHA.1-PROTEINASE INHIBITOR HUMAN
     Indication: Alpha-1 antitrypsin deficiency
     Dosage: 5000 MILLIGRAM, 1/WEEK
     Route: 042
     Dates: start: 20151224
  2. .ALPHA.1-PROTEINASE INHIBITOR HUMAN [Suspect]
     Active Substance: .ALPHA.1-PROTEINASE INHIBITOR HUMAN
     Indication: Alpha-1 antitrypsin deficiency
     Dosage: 5000 MILLIGRAM, 1/WEEK
     Route: 042
     Dates: start: 20151224
  3. DIPHENHYDRAMINE [Concomitant]
     Active Substance: DIPHENHYDRAMINE
  4. SODIUM CHLORIDE [Concomitant]
     Active Substance: SODIUM CHLORIDE
  5. EPINEPHRINE [Concomitant]
     Active Substance: EPINEPHRINE

REACTIONS (3)
  - Death [Fatal]
  - Cardiac valve disease [Unknown]
  - Sepsis [Unknown]
